FAERS Safety Report 17727825 (Version 1)
Quarter: 2020Q2

REPORT INFORMATION
  Report Type: Spontaneous
  Country: US (occurrence: US)
  Receive Date: 20200429
  Receipt Date: 20200429
  Transmission Date: 20200714
  Serious: No
  Sender: FDA-Public Use
  Company Number: None

PATIENT
  Age: 68 Year
  Sex: Male
  Weight: 78.75 kg

DRUGS (15)
  1. GABAPENTIN. [Concomitant]
     Active Substance: GABAPENTIN
  2. NIFEDIPINE. [Concomitant]
     Active Substance: NIFEDIPINE
  3. OMEPRAZOLE. [Concomitant]
     Active Substance: OMEPRAZOLE
  4. POTASSIUM CHLORIDE. [Concomitant]
     Active Substance: POTASSIUM CHLORIDE
  5. QUETIAPINE. [Concomitant]
     Active Substance: QUETIAPINE
  6. LORAZEPAM. [Concomitant]
     Active Substance: LORAZEPAM
  7. TYLENOL [Concomitant]
     Active Substance: ACETAMINOPHEN
  8. MESALAMINE. [Suspect]
     Active Substance: MESALAMINE
     Indication: COLITIS ULCERATIVE
     Dosage: ?          QUANTITY:2 CAPSULE(S);?
     Route: 048
     Dates: start: 20200404, end: 20200429
  9. RISPERIDONE. [Concomitant]
     Active Substance: RISPERIDONE
  10. LEVOTHYROXINE. [Concomitant]
     Active Substance: LEVOTHYROXINE
  11. LISINOPRIL. [Concomitant]
     Active Substance: LISINOPRIL
  12. FUROSEMIDE. [Concomitant]
     Active Substance: FUROSEMIDE
  13. ALBUTEROL. [Concomitant]
     Active Substance: ALBUTEROL
  14. ATORVASTATIN [Concomitant]
     Active Substance: ATORVASTATIN
  15. ZOLPIDEM [Concomitant]
     Active Substance: ZOLPIDEM TARTRATE

REACTIONS (13)
  - Thirst [None]
  - Abdominal pain [None]
  - Hypertension [None]
  - Nausea [None]
  - Diarrhoea [None]
  - Constipation [None]
  - Abnormal faeces [None]
  - Decreased appetite [None]
  - Tachycardia [None]
  - Mouth ulceration [None]
  - Dyspepsia [None]
  - Cough [None]
  - Oedema peripheral [None]

NARRATIVE: CASE EVENT DATE: 20200410
